FAERS Safety Report 9514967 (Version 1)
Quarter: 2013Q1

REPORT INFORMATION
  Report Type: Spontaneous
  Country: US (occurrence: None)
  Receive Date: 20130305
  Receipt Date: 20130305
  Transmission Date: 20140127
  Serious: Yes (Other)
  Sender: FDA-Public Use
  Company Number: 163-21880-12112725

PATIENT
  Age: 60 Year
  Sex: Female

DRUGS (8)
  1. REVLIMID (LENALIDOMIDE) [Suspect]
     Route: 048
     Dates: start: 20100323
  2. ASPIRIN [Concomitant]
  3. PRILOSEC [Concomitant]
  4. CALCIUM PLUS D [Concomitant]
  5. VITAMIN B COMPLEX (B-KOMPLEX LECIVA) [Concomitant]
  6. MULTIVITAMIN [Concomitant]
  7. VITAMIN D (ERGOCALCIFEROL) [Concomitant]
  8. FISH OIL (FISH OIL) [Concomitant]

REACTIONS (1)
  - Hypothyroidism [None]
